FAERS Safety Report 7657241-X (Version None)
Quarter: 2011Q3

REPORT INFORMATION
  Report Type: 
  Country: None (occurrence: None)
  Receive Date: 20110804
  Receipt Date: 20110724
  Transmission Date: 20111222
  Serious: Yes (Hospitalization, Other)
  Sender: FDA-Public Use
  Company Number: PHHY2011CL66575

PATIENT
  Sex: Female

DRUGS (3)
  1. METHOTREXATE [Concomitant]
  2. GLEEVEC [Suspect]
     Dosage: 600 MG, PER DAY
     Route: 048
     Dates: start: 20110723
  3. GLEEVEC [Suspect]
     Indication: CHRONIC MYELOID LEUKAEMIA
     Dosage: 600 MG, PER DAY
     Route: 048
     Dates: start: 20100101

REACTIONS (3)
  - URINARY TRACT INFECTION [None]
  - PATHOGEN RESISTANCE [None]
  - BONE MARROW FAILURE [None]
